FAERS Safety Report 4301943-X (Version None)
Quarter: 2004Q1

REPORT INFORMATION
  Report Type: 
  Country: None (occurrence: None)
  Receive Date: 20040220
  Receipt Date: 20040217
  Transmission Date: 20041129
  Serious: Yes (Hospitalization)
  Sender: FDA-Public Use
  Company Number: TPA2004A00126

PATIENT
  Age: 76 Year
  Sex: Female
  Weight: 83.9154 kg

DRUGS (8)
  1. ACTOS [Suspect]
     Indication: DIABETES MELLITUS NON-INSULIN-DEPENDENT
     Dosage: 30 MG, 1 IN 1 D, PER ORAL
     Route: 048
     Dates: start: 20040122
  2. CHROMIUM PICOLINATE (CHROMIUM PICOLINATE) [Suspect]
     Dosage: ONCE, PER ORAL
     Route: 048
     Dates: start: 20040201, end: 20040201
  3. PLAVIX [Concomitant]
  4. CLONIDINE PATCHES (CLONIDINE) [Concomitant]
  5. TOPROL-XL [Concomitant]
  6. LOTREL (LOTREL) [Concomitant]
  7. AVAPRO [Concomitant]
  8. GLUCOPHAGE [Concomitant]

REACTIONS (6)
  - BLOOD GLUCOSE INCREASED [None]
  - BLOOD PRESSURE INCREASED [None]
  - CARDIAC DISORDER [None]
  - DYSPNOEA [None]
  - HEART RATE DECREASED [None]
  - SHOCK [None]
